FAERS Safety Report 18228387 (Version 1)
Quarter: 2020Q3

REPORT INFORMATION
  Report Type: Spontaneous
  Country: FR (occurrence: FR)
  Receive Date: 20200903
  Receipt Date: 20200903
  Transmission Date: 20201103
  Serious: Yes (Other)
  Sender: FDA-Public Use
  Company Number: FR-TEVA-2020-FR-1821955

PATIENT
  Age: 46 Year
  Sex: Female

DRUGS (3)
  1. TRAMADOL (CHLORHYDRATE DE) [Suspect]
     Active Substance: TRAMADOL HYDROCHLORIDE
     Dosage: 700 MILLIGRAM DAILY;
     Route: 048
     Dates: start: 2013
  2. SKENAN [Suspect]
     Active Substance: MORPHINE SULFATE
     Dosage: 6 DOSAGE FORMS
     Route: 048
     Dates: start: 2013
  3. ACTISKENAN 20 MG, GELULE [Suspect]
     Active Substance: MORPHINE SULFATE
     Dosage: 5 DOSAGE FORMS
     Route: 048
     Dates: start: 2013

REACTIONS (1)
  - Drug dependence [Recovering/Resolving]

NARRATIVE: CASE EVENT DATE: 2018
